FAERS Safety Report 7045037-1 (Version None)
Quarter: 2010Q4

REPORT INFORMATION
  Report Type: 
  Country: None (occurrence: None)
  Receive Date: 20101014
  Receipt Date: 20101004
  Transmission Date: 20110411
  Serious: Yes (Death, Hospitalization)
  Sender: FDA-Public Use
  Company Number: TR-GENZYME-POMP-1001023

PATIENT
  Sex: Male
  Weight: 5 kg

DRUGS (5)
  1. MYOZYME [Suspect]
     Indication: GLYCOGEN STORAGE DISEASE TYPE II
     Dosage: 20 MG/KG, Q2W
     Route: 042
     Dates: start: 20100528, end: 20100625
  2. PROPRANOLOL HYDROCHLORIDE [Concomitant]
     Indication: PRODUCT USED FOR UNKNOWN INDICATION
     Dosage: 10 MG/KG, BID
     Route: 065
     Dates: start: 20100528, end: 20100704
  3. CEFTRIAXONE [Concomitant]
     Indication: PRODUCT USED FOR UNKNOWN INDICATION
     Dosage: 400 MG/KG, BID
     Route: 065
     Dates: start: 20100702, end: 20100704
  4. ANTIHISTAMINES [Concomitant]
     Indication: RESPIRATORY ARREST
     Dosage: UNK UNK, UNK
     Route: 065
     Dates: start: 20100701, end: 20100701
  5. ANTIHISTAMINES [Concomitant]
     Indication: RESPIRATORY DISTRESS

REACTIONS (3)
  - RESPIRATORY ARREST [None]
  - RESPIRATORY DISTRESS [None]
  - RESPIRATORY FAILURE [None]
